FAERS Safety Report 24680664 (Version 2)
Quarter: 2024Q4

REPORT INFORMATION
  Report Type: Spontaneous
  Country: DK (occurrence: DK)
  Receive Date: 20241129
  Receipt Date: 20241206
  Transmission Date: 20250115
  Serious: Yes (Other)
  Sender: PURDUE
  Company Number: DK-MLMSERVICE-20241122-PI263145-00229-7

PATIENT
  Sex: Female

DRUGS (1)
  1. MORPHINE SULFATE [Suspect]
     Active Substance: MORPHINE SULFATE
     Indication: Product used for unknown indication
     Dosage: PROLONGED-RELEASE
     Route: 065
     Dates: start: 201702

REACTIONS (4)
  - Sensation of foreign body [Unknown]
  - Throat irritation [Unknown]
  - Pruritus [Unknown]
  - Pharyngeal swelling [Unknown]

NARRATIVE: CASE EVENT DATE: 20170201
